FAERS Safety Report 24395485 (Version 2)
Quarter: 2024Q4

REPORT INFORMATION
  Report Type: Spontaneous
  Country: IT (occurrence: IT)
  Receive Date: 20241004
  Receipt Date: 20241015
  Transmission Date: 20250115
  Serious: Yes (Hospitalization, Other)
  Sender: SANOFI AVENTIS
  Company Number: IT-CHEPLA-2024010315

PATIENT
  Age: 39 Year
  Sex: Male

DRUGS (22)
  1. ENOXAPARIN SODIUM [Suspect]
     Active Substance: ENOXAPARIN SODIUM
     Indication: Superficial vein thrombosis
     Dosage: UNK
     Dates: start: 202304
  2. PEMBROLIZUMAB [Concomitant]
     Active Substance: PEMBROLIZUMAB
     Indication: Malignant melanoma stage III
     Dosage: UNK
     Dates: start: 2016
  3. LEVOTHYROXINE [Concomitant]
     Active Substance: LEVOTHYROXINE
     Indication: Hypothyroidism
     Dosage: UNK
     Dates: start: 202210
  4. FUROSEMIDE [Concomitant]
     Active Substance: FUROSEMIDE
     Indication: Pleural effusion
     Dosage: UNK
     Dates: start: 202212
  5. FUROSEMIDE [Concomitant]
     Active Substance: FUROSEMIDE
     Indication: Pericardial effusion
     Dosage: UNK
     Route: 042
     Dates: start: 202301
  6. METHYLPREDNISOLONE [Concomitant]
     Active Substance: METHYLPREDNISOLONE
     Indication: Porcelain gallbladder
     Dosage: 1 MG/KG
     Route: 042
     Dates: start: 202212
  7. METHYLPREDNISOLONE [Concomitant]
     Active Substance: METHYLPREDNISOLONE
     Indication: Pleural effusion
     Dosage: 1 MG/KG, RESTARTED
     Dates: start: 202301
  8. METHYLPREDNISOLONE [Concomitant]
     Active Substance: METHYLPREDNISOLONE
     Indication: Pericardial effusion
  9. PREDNISONE [Concomitant]
     Active Substance: PREDNISONE
     Indication: Pleural effusion
     Dosage: 1 MG/KG
     Route: 048
     Dates: start: 202212
  10. PREDNISONE [Concomitant]
     Active Substance: PREDNISONE
     Indication: Pericardial effusion
  11. ALBUMIN HUMAN [Concomitant]
     Active Substance: ALBUMIN HUMAN
     Dosage: UNK
     Dates: start: 202301
  12. IMMUNE GLOBULIN NOS [Concomitant]
     Active Substance: IMMUNE GLOBULIN NOS
     Dosage: 400 MG/KG, QD
     Dates: start: 202301
  13. VALGANCICLOVIR [Concomitant]
     Active Substance: VALGANCICLOVIR
     Indication: Cytomegalovirus infection
     Dosage: UNK
     Route: 048
     Dates: start: 202303
  14. MYCOPHENOLATE MOFETIL [Concomitant]
     Active Substance: MYCOPHENOLATE MOFETIL
     Dosage: 500 MG, BID
     Dates: start: 202303
  15. URSODIOL [Concomitant]
     Active Substance: URSODIOL
     Dosage: 300 MG, TID
     Dates: start: 202303
  16. SULFAMETHOXAZOLE\TRIMETHOPRIM [Concomitant]
     Active Substance: SULFAMETHOXAZOLE\TRIMETHOPRIM
     Indication: Prophylaxis
     Dosage: UNK
     Dates: start: 202303
  17. CANRENONE [Concomitant]
     Active Substance: CANRENONE
     Dosage: 100 MG, BID
     Dates: start: 202303
  18. CEFTAZIDIME [Concomitant]
     Active Substance: CEFTAZIDIME
     Indication: Pseudomonas infection
     Dosage: 2 G, QD
     Dates: start: 202304
  19. AMPHOTERICIN B [Concomitant]
     Active Substance: AMPHOTERICIN B
     Indication: Pseudomonas infection
     Dosage: 3 MG/KG
     Dates: start: 202304
  20. ACYCLOVIR [Concomitant]
     Active Substance: ACYCLOVIR
     Indication: Varicella zoster virus infection
     Dosage: 750 MG, TID
     Dates: start: 202304
  21. DABRAFENIB [Concomitant]
     Active Substance: DABRAFENIB
     Indication: Neoplasm recurrence
     Dosage: UNK
     Dates: start: 202304
  22. TRAMETINIB [Concomitant]
     Active Substance: TRAMETINIB
     Indication: Neoplasm recurrence
     Dosage: UNK
     Dates: start: 202304

REACTIONS (3)
  - Hypotension [Recovered/Resolved]
  - Anaemia [Recovered/Resolved]
  - Chest wall haematoma [Unknown]
